FAERS Safety Report 10565806 (Version 1)
Quarter: 2014Q4

REPORT INFORMATION
  Report Type: Spontaneous
  Country: BR (occurrence: BR)
  Receive Date: 20141105
  Receipt Date: 20141105
  Transmission Date: 20150529
  Serious: Yes (Hospitalization, Other)
  Sender: FDA-Public Use
  Company Number: BR-UCBSA-2014017376

PATIENT
  Sex: Female
  Weight: 10 kg

DRUGS (3)
  1. NITRAZEPAM [Concomitant]
     Active Substance: NITRAZEPAM
     Indication: PRODUCT USED FOR UNKNOWN INDICATION
  2. FRISIUM [Concomitant]
     Active Substance: CLOBAZAM
     Indication: PRODUCT USED FOR UNKNOWN INDICATION
     Dosage: 1.5 ML, 3X/DAY (TID)
     Dates: start: 2014
  3. KEPPRA [Suspect]
     Active Substance: LEVETIRACETAM
     Indication: PRODUCT USED FOR UNKNOWN INDICATION
     Dosage: 2 ML, 3X/DAY (TID)
     Dates: start: 201401

REACTIONS (1)
  - Status epilepticus [Recovering/Resolving]

NARRATIVE: CASE EVENT DATE: 2014
